FAERS Safety Report 15517991 (Version 1)
Quarter: 2018Q4

REPORT INFORMATION
  Report Type: Spontaneous
  Country: LB (occurrence: LB)
  Receive Date: 20181017
  Receipt Date: 20181017
  Transmission Date: 20190205
  Serious: Yes (Disabling, Other)
  Sender: FDA-Public Use
  Company Number: LB-NOVOPROD-626700

PATIENT

DRUGS (2)
  1. TRANEXAMIC ACID. [Suspect]
     Active Substance: TRANEXAMIC ACID
     Indication: PRODUCT USED FOR UNKNOWN INDICATION
     Dosage: UNK
     Route: 065
  2. NOVOSEVEN [Suspect]
     Active Substance: COAGULATION FACTOR VIIA RECOMBINANT HUMAN
     Indication: GASTROINTESTINAL ULCER HAEMORRHAGE
     Dosage: 2 DOSES OF NOVOSEVEN EACH EQUIVALENT TO 7MG
     Route: 065

REACTIONS (3)
  - Off label use [Unknown]
  - Cerebral artery embolism [Unknown]
  - Optic nerve injury [Unknown]
